FAERS Safety Report 8206063-X (Version None)
Quarter: 2012Q1

REPORT INFORMATION
  Report Type: 
  Country: None (occurrence: None)
  Receive Date: 20120313
  Receipt Date: 20120227
  Transmission Date: 20120608
  Serious: Yes (Other)
  Sender: FDA-Public Use
  Company Number: CHPA2012US004074

PATIENT
  Age: 28 Year
  Sex: Female

DRUGS (1)
  1. EXCEDRIN (MIGRAINE) [Suspect]
     Indication: MIGRAINE
     Dosage: 2 DF, UNK
     Route: 048
     Dates: start: 20111201, end: 20120225

REACTIONS (4)
  - DIARRHOEA [None]
  - VOMITING [None]
  - NAUSEA [None]
  - GASTROENTERITIS NOROVIRUS [None]
